FAERS Safety Report 4907067-2 (Version None)
Quarter: 2006Q1

REPORT INFORMATION
  Report Type: 
  Country: None (occurrence: None)
  Receive Date: 20060206
  Receipt Date: 20060124
  Transmission Date: 20060701
  Serious: No
  Sender: FDA-Public Use
  Company Number: 2006-00309

PATIENT
  Sex: Female

DRUGS (8)
  1. TESTOSTERONE ENANTHATE(WATSON LABORATORIES) (TESTOSTERONE ENANTHATE) I [Suspect]
     Indication: HORMONE REPLACEMENT THERAPY
     Dates: start: 19811001, end: 20010101
  2. ESTRADIOL [Suspect]
     Indication: HORMONE REPLACEMENT THERAPY
     Dates: start: 19811001, end: 20010101
  3. ESTRONE [Suspect]
     Indication: HORMONE REPLACEMENT THERAPY
     Dates: start: 19811001, end: 20010101
  4. ESTRADIOL VALERATE [Suspect]
     Indication: HORMONE REPLACEMENT THERAPY
     Dates: start: 19811001, end: 20010101
  5. PREMPRO [Suspect]
     Indication: HORMONE REPLACEMENT THERAPY
     Dates: start: 19811001, end: 20010101
  6. PREMARIN [Suspect]
     Indication: HORMONE REPLACEMENT THERAPY
     Dates: start: 19811001, end: 20010101
  7. PROVERA [Suspect]
     Indication: HORMONE REPLACEMENT THERAPY
     Dates: start: 19811001, end: 20010101
  8. ESTRACE [Suspect]
     Indication: HORMONE REPLACEMENT THERAPY
     Dates: start: 19811001, end: 20010101

REACTIONS (1)
  - BREAST CANCER FEMALE [None]
